FAERS Safety Report 10574053 (Version 3)
Quarter: 2014Q4

REPORT INFORMATION
  Report Type: Spontaneous
  Country: EE (occurrence: EE)
  Receive Date: 20141110
  Receipt Date: 20141218
  Transmission Date: 20150529
  Serious: Yes (Death, Hospitalization, Other)
  Sender: FDA-Public Use
  Company Number: EE-ELI_LILLY_AND_COMPANY-EE201410004027

PATIENT
  Age: 64 Year
  Sex: Male
  Weight: 90 kg

DRUGS (2)
  1. ALIMTA [Suspect]
     Active Substance: PEMETREXED DISODIUM
     Indication: LUNG NEOPLASM MALIGNANT
     Dosage: 500 MG/M2, MONTHLY (1/M)
     Route: 042
     Dates: start: 20140502, end: 20140910
  2. OXYCODONE [Concomitant]
     Active Substance: OXYCODONE
     Indication: PAIN
     Dosage: UNK, UNKNOWN
     Route: 048

REACTIONS (4)
  - Nephropathy toxic [Unknown]
  - Hypernatraemia [Recovering/Resolving]
  - Malignant neoplasm progression [Fatal]
  - Renal failure [Recovering/Resolving]

NARRATIVE: CASE EVENT DATE: 20140910
